FAERS Safety Report 12736646 (Version 1)
Quarter: 2016Q3

REPORT INFORMATION
  Report Type: Spontaneous
  Country: US (occurrence: US)
  Receive Date: 20160913
  Receipt Date: 20160913
  Transmission Date: 20161109
  Serious: No
  Sender: FDA-Public Use
  Company Number: US-JNJFOC-20160811755

PATIENT
  Sex: Female
  Weight: 52.16 kg

DRUGS (1)
  1. TRAMADOL ER [Suspect]
     Active Substance: TRAMADOL HYDROCHLORIDE
     Indication: PAIN
     Dosage: ABOUT 6-9 MONTHS AGO (FROM TIME OF REPORT)
     Route: 048

REACTIONS (1)
  - Unevaluable event [Unknown]
